FAERS Safety Report 8182688-5 (Version None)
Quarter: 2012Q1

REPORT INFORMATION
  Report Type: 
  Country: None (occurrence: None)
  Receive Date: 20120305
  Receipt Date: 20120229
  Transmission Date: 20120608
  Serious: No
  Sender: FDA-Public Use
  Company Number: US-PFIZER INC-2012055207

PATIENT
  Sex: Female
  Weight: 94.331 kg

DRUGS (6)
  1. CELEBREX [Suspect]
     Indication: PAIN
  2. MELOXICAM [Suspect]
     Indication: PAIN
     Dosage: 7.5 MG, DAILY
     Route: 048
     Dates: start: 20110101
  3. VICODIN [Concomitant]
     Indication: PAIN
     Dosage: UNK
     Route: 048
  4. CELEBREX [Suspect]
     Indication: BONE PAIN
  5. TRAMADOL HYDROCHLORIDE [Suspect]
     Indication: PAIN
     Dosage: 50 MG, 4X/DAY
     Route: 048
     Dates: start: 20110101
  6. CELEBREX [Suspect]
     Indication: ARTHRITIS
     Dosage: UNK
     Route: 048
     Dates: end: 20110101

REACTIONS (5)
  - PAIN IN EXTREMITY [None]
  - PAIN [None]
  - DRUG INEFFECTIVE [None]
  - GAIT DISTURBANCE [None]
  - FALL [None]
